FAERS Safety Report 17392539 (Version 1)
Quarter: 2020Q1

REPORT INFORMATION
  Report Type: Spontaneous
  Country: DK (occurrence: DK)
  Receive Date: 20200207
  Receipt Date: 20200207
  Transmission Date: 20200409
  Serious: Yes (Hospitalization)
  Sender: FDA-Public Use
  Company Number: DK-B.I. PHARMACEUTICALS,INC./RIDGEFIELD-2020-12-006500

PATIENT
  Age: 78 Year
  Sex: Female

DRUGS (2)
  1. PRADAXA [Suspect]
     Active Substance: DABIGATRAN ETEXILATE MESYLATE
     Indication: ATRIAL FIBRILLATION
     Dosage: STYRKE: 150 MG.
     Route: 048
     Dates: start: 20121108, end: 20200123
  2. EMTHEXATE [METHOTREXATE] [Concomitant]
     Indication: RHEUMATOID ARTHRITIS
     Dosage: STYRKE: 2,5 MG.
     Route: 048
     Dates: start: 2018, end: 20200123

REACTIONS (2)
  - Subdural haematoma [Unknown]
  - Fall [Unknown]

NARRATIVE: CASE EVENT DATE: 20200123
